FAERS Safety Report 7453112-2 (Version None)
Quarter: 2011Q2

REPORT INFORMATION
  Report Type: 
  Country: None (occurrence: None)
  Receive Date: 20110502
  Receipt Date: 20101115
  Transmission Date: 20111010
  Serious: No
  Sender: FDA-Public Use
  Company Number: US-ASTRAZENECA-2010SE54557

PATIENT
  Sex: Male

DRUGS (2)
  1. PRILOSEC [Suspect]
  2. NEXIUM [Suspect]

REACTIONS (3)
  - BREAKTHROUGH PAIN [None]
  - DRUG DOSE OMISSION [None]
  - GASTROOESOPHAGEAL REFLUX DISEASE [None]
